FAERS Safety Report 5842180-7 (Version None)
Quarter: 2008Q3

REPORT INFORMATION
  Report Type: 
  Country: None (occurrence: None)
  Receive Date: 20080812
  Receipt Date: 20080730
  Transmission Date: 20090109
  Serious: Yes (Other)
  Sender: FDA-Public Use
  Company Number: FR-ROCHE-566922

PATIENT
  Age: 88 Year
  Sex: Female
  Weight: 86 kg

DRUGS (9)
  1. ROCEPHIN [Suspect]
     Indication: URINARY TRACT INFECTION
     Dosage: FORMULATION REPORTED AS: INJECTABLE AMPULE. THE PATIENT RECEIVED ROCEPHINE (+LIDOCAINE)
     Route: 058
     Dates: start: 20080417, end: 20080426
  2. LASILIX 40 [Concomitant]
     Dosage: DOSAGE REGIMEN: 1/DAY
     Route: 048
  3. SECTRAL [Concomitant]
     Dosage: DOSE REPORTED AS: 0.5
     Route: 048
  4. HYPERIUM [Concomitant]
     Dosage: DOSAGE REGIMEN: 1/DAY.
     Route: 048
  5. EFFEXOR [Concomitant]
     Dosage: DOSAGE REGIMEN: 1/DAY. DRUG REPORTED AS: EFFEXOR LP 75
     Route: 048
  6. IMOVANE [Concomitant]
     Dosage: DRUG REPORTED AS: IMOVANE 3.75. DOSAGE REGIMEN: 1/DAY.
     Route: 048
  7. DOLIPRANE [Concomitant]
     Dosage: DRUG REPORTED AS: DOLIPRANE 500 DOSAGE REGIMEN REPORTED AS: 2 TID.
     Route: 048
  8. COUMADIN [Concomitant]
     Route: 048
  9. XANAX [Concomitant]
     Dosage: DRUG: XANAX 0.25 DOSE: 0.5
     Route: 048

REACTIONS (3)
  - FIBROSIS [None]
  - INJECTION SITE NECROSIS [None]
  - SKIN INDURATION [None]
